FAERS Safety Report 6043719-1 (Version None)
Quarter: 2009Q1

REPORT INFORMATION
  Report Type: 
  Country: None (occurrence: None)
  Receive Date: 20090115
  Receipt Date: 20090106
  Transmission Date: 20090719
  Serious: Yes (Hospitalization)
  Sender: FDA-Public Use
  Company Number: CIP09000041

PATIENT
  Age: 76 Year
  Sex: Female

DRUGS (7)
  1. ACTONEL [Suspect]
     Indication: OSTEOPOROSIS
     Dosage: 1 TABLET/SACHET CYCLIC DAILY, ORAL
     Route: 048
     Dates: start: 20081204, end: 20081211
  2. FUROSEMIDE (FUROSEMIDE) [Concomitant]
  3. NORMODIPINE (AMLODIPINE BESILATE) [Concomitant]
  4. PLAVIX [Concomitant]
  5. VASILIP (SIMVASTATIN) [Concomitant]
  6. NOACID (DIHYDROXYALUMINUM SODIUM CARBONATE) [Concomitant]
  7. NOOTROPIL (PIRACETAM) [Concomitant]

REACTIONS (2)
  - DERMATITIS EXFOLIATIVE [None]
  - RASH MACULO-PAPULAR [None]
